FAERS Safety Report 5577523-5 (Version None)
Quarter: 2007Q4

REPORT INFORMATION
  Report Type: 
  Country: None (occurrence: None)
  Receive Date: 20071228
  Receipt Date: 20071213
  Transmission Date: 20080405
  Serious: Yes (Other)
  Sender: FDA-Public Use
  Company Number: FR-PFIZER INC-2007108209

PATIENT
  Sex: Female

DRUGS (2)
  1. XALATAN [Suspect]
     Indication: OPEN ANGLE GLAUCOMA
     Dates: start: 20070320, end: 20070801
  2. LUMIGAN [Suspect]
     Dates: start: 20070101, end: 20070101

REACTIONS (1)
  - INTRAOCULAR PRESSURE INCREASED [None]
